FAERS Safety Report 5315273-0 (Version None)
Quarter: 2007Q2

REPORT INFORMATION
  Report Type: 
  Country: None (occurrence: None)
  Receive Date: 20070427
  Receipt Date: 20070423
  Transmission Date: 20071010
  Serious: Yes (Other)
  Sender: FDA-Public Use
  Company Number: OSCN-PR-0704S-0174

PATIENT
  Sex: Female

DRUGS (1)
  1. OMNISCAN [Suspect]
     Indication: DEVICE FAILURE
     Dosage: 40 ML, SINGLE DOSE,  I.V.
     Route: 042
     Dates: start: 20060624, end: 20060624

REACTIONS (1)
  - NEPHROGENIC FIBROSING DERMOPATHY [None]
